FAERS Safety Report 22234646 (Version 1)
Quarter: 2023Q2

REPORT INFORMATION
  Report Type: Spontaneous
  Country: CN (occurrence: CN)
  Receive Date: 20230420
  Receipt Date: 20230420
  Transmission Date: 20230721
  Serious: Yes (Other)
  Sender: FDA-Public Use
  Company Number: CN-BIOVITRUM-2023-CN-009427

PATIENT
  Age: 72 Year
  Sex: Female

DRUGS (1)
  1. AVATROMBOPAG MALEATE [Suspect]
     Active Substance: AVATROMBOPAG MALEATE
     Indication: Hepatic embolisation
     Dosage: 60 MG (20 MG,1 IN 1 D)DAILY
     Route: 048
     Dates: start: 20220713, end: 20220717

REACTIONS (1)
  - Leukopenia [Recovering/Resolving]

NARRATIVE: CASE EVENT DATE: 20220713
